FAERS Safety Report 19859131 (Version 1)
Quarter: 2021Q3

REPORT INFORMATION
  Report Type: Spontaneous
  Country: US (occurrence: US)
  Receive Date: 20210921
  Receipt Date: 20210921
  Transmission Date: 20211014
  Serious: No
  Sender: FDA-Public Use
  Company Number: US-DRREDDYS-SPO/USA/21/0140289

PATIENT
  Age: 84 Year
  Sex: Female
  Weight: 49.95 kg

DRUGS (1)
  1. FAMOTIDINE 20 MG OTC [Suspect]
     Active Substance: FAMOTIDINE
     Indication: DYSPEPSIA
     Dates: start: 202108

REACTIONS (1)
  - Prescribed overdose [Unknown]
